FAERS Safety Report 5470576-4 (Version None)
Quarter: 2007Q3

REPORT INFORMATION
  Report Type: 
  Country: None (occurrence: None)
  Receive Date: 20070928
  Receipt Date: 20070918
  Transmission Date: 20080115
  Serious: Yes (Hospitalization)
  Sender: FDA-Public Use
  Company Number: US-JNJFOC-20070604537

PATIENT
  Sex: Female
  Weight: 72.8 kg

DRUGS (5)
  1. DOXORUBICIN HCL [Suspect]
     Indication: OVARIAN CANCER
     Route: 042
  2. TRABECTEDIN [Suspect]
     Indication: OVARIAN CANCER
     Route: 042
  3. ACETAMINOPHEN [Concomitant]
     Indication: PAIN
     Dosage: AS NECESSARY
     Route: 048
  4. MAGNESIUM SULFATE [Concomitant]
     Route: 042
  5. DEXAMETHASONE 0.5MG TAB [Concomitant]
     Route: 042

REACTIONS (1)
  - IDIOPATHIC THROMBOCYTOPENIC PURPURA [None]
